FAERS Safety Report 4435690-0 (Version None)
Quarter: 2004Q3

REPORT INFORMATION
  Report Type: 
  Country: None (occurrence: None)
  Receive Date: 20040726
  Receipt Date: 20040220
  Transmission Date: 20050211
  Serious: No
  Sender: FDA-Public Use
  Company Number: US_0402101125

PATIENT
  Age: 75 Year
  Sex: Female
  Weight: 55 kg

DRUGS (3)
  1. FORTEO [Suspect]
     Indication: FOOT FRACTURE
     Dosage: 20 UG/1 DAY
     Dates: start: 20040217
  2. FORTEO [Suspect]
     Indication: HIP FRACTURE
     Dosage: 20 UG/1 DAY
     Dates: start: 20040217
  3. FORTEO [Suspect]
     Indication: TIBIA FRACTURE
     Dosage: 20 UG/1 DAY
     Dates: start: 20040217

REACTIONS (3)
  - MUSCULOSKELETAL STIFFNESS [None]
  - MYALGIA [None]
  - PAIN [None]
